FAERS Safety Report 12009916 (Version 1)
Quarter: 2016Q1

REPORT INFORMATION
  Report Type: Spontaneous
  Country: CN (occurrence: CN)
  Receive Date: 20160205
  Receipt Date: 20160205
  Transmission Date: 20160526
  Serious: Yes (Other)
  Sender: FDA-Public Use
  Company Number: PHHY2016CN014716

PATIENT
  Age: 21 Year
  Sex: Male

DRUGS (4)
  1. ADEFOVIR [Concomitant]
     Active Substance: ADEFOVIR
     Indication: CHRONIC HEPATITIS B
     Dosage: UNK
     Route: 065
  2. TELBIVUDINE [Suspect]
     Active Substance: TELBIVUDINE
     Indication: CHRONIC HEPATITIS B
     Dosage: 600 MG, QD
     Route: 065
  3. PEGYLATED INTERFERON ALFA-2A [Concomitant]
     Active Substance: PEGINTERFERON ALFA-2A
     Indication: CHRONIC HEPATITIS B
     Dosage: UNK
     Route: 065
  4. RIBAVIRIN. [Concomitant]
     Active Substance: RIBAVIRIN
     Indication: CHRONIC HEPATITIS B
     Dosage: UNK
     Route: 065

REACTIONS (4)
  - Rhabdomyolysis [Recovering/Resolving]
  - Anuria [Recovering/Resolving]
  - Myalgia [Recovering/Resolving]
  - Oedema peripheral [Recovering/Resolving]
